FAERS Safety Report 25757165 (Version 1)
Quarter: 2025Q3

REPORT INFORMATION
  Report Type: Spontaneous
  Country: US (occurrence: US)
  Receive Date: 20250903
  Receipt Date: 20250903
  Transmission Date: 20251020
  Serious: Yes (Death)
  Sender: AMGEN
  Company Number: US-AMGEN-USASP2025170426

PATIENT

DRUGS (1)
  1. AFLIBERCEPT [Suspect]
     Active Substance: AFLIBERCEPT
     Indication: Neovascular age-related macular degeneration

REACTIONS (2)
  - Bladder cancer [Fatal]
  - Sepsis [Fatal]
